FAERS Safety Report 4927866-0 (Version None)
Quarter: 2006Q1

REPORT INFORMATION
  Report Type: 
  Country: None (occurrence: None)
  Receive Date: 20060228
  Receipt Date: 20060224
  Transmission Date: 20060701
  Serious: Yes (Hospitalization)
  Sender: FDA-Public Use
  Company Number: MX-GLAXOSMITHKLINE-A0595182A

PATIENT

DRUGS (1)
  1. ZOFRAN [Suspect]
     Indication: DRUG USE FOR UNKNOWN INDICATION
     Route: 042
     Dates: start: 20060223

REACTIONS (2)
  - FEELING HOT [None]
  - RASH [None]
